FAERS Safety Report 7306457-0 (Version None)
Quarter: 2011Q1

REPORT INFORMATION
  Report Type: 
  Country: None (occurrence: None)
  Receive Date: 20110222
  Receipt Date: 20110213
  Transmission Date: 20110831
  Serious: Yes (Other)
  Sender: FDA-Public Use
  Company Number: FR-GENZYME-CERZ-1001875

PATIENT
  Age: 29 Year
  Sex: Male

DRUGS (3)
  1. CEREZYME [Suspect]
     Indication: GAUCHER'S DISEASE
     Dosage: 60 U/KG, Q2W
     Route: 042
  2. CEREZYME [Suspect]
     Dosage: 120 U/KG, Q2W
     Route: 042
  3. MIGLUSTAT [Suspect]
     Indication: GAUCHER'S DISEASE
     Dosage: 100 MG, UNK

REACTIONS (6)
  - HYPERSENSITIVITY [None]
  - MYOCLONUS [None]
  - STATUS EPILEPTICUS [None]
  - COGNITIVE DISORDER [None]
  - EPILEPSY [None]
  - CONDITION AGGRAVATED [None]
